FAERS Safety Report 14412304 (Version 1)
Quarter: 2018Q1

REPORT INFORMATION
  Report Type: Spontaneous
  Country: GR (occurrence: GR)
  Receive Date: 20180119
  Receipt Date: 20180119
  Transmission Date: 20180509
  Serious: Yes (Death)
  Sender: FDA-Public Use
  Company Number: GR-EISAI MEDICAL RESEARCH-EC-2018-035066

PATIENT
  Age: 48 Year
  Sex: Male

DRUGS (1)
  1. LENVIMA [Suspect]
     Active Substance: LENVATINIB
     Indication: THYROID CANCER
     Dosage: UNKNOWN
     Route: 048
     Dates: start: 201709, end: 20171215

REACTIONS (2)
  - Lymphangiosis carcinomatosa [Fatal]
  - Pneumonitis [Unknown]

NARRATIVE: CASE EVENT DATE: 2017
